FAERS Safety Report 8620489-1 (Version None)
Quarter: 2012Q3

REPORT INFORMATION
  Report Type: 
  Country: None (occurrence: None)
  Receive Date: 20120824
  Receipt Date: 20120820
  Transmission Date: 20120928
  Serious: Yes (Hospitalization)
  Sender: FDA-Public Use
  Company Number: US-009507513-2012SP025394

PATIENT

DRUGS (1)
  1. NUVARING [Suspect]
     Indication: CONTRACEPTION
     Dosage: UNK
     Dates: start: 20070701, end: 20110801

REACTIONS (8)
  - POST PROCEDURAL COMPLICATION [None]
  - PERIPHERAL EMBOLISM [None]
  - CONSTIPATION [None]
  - HYPOAESTHESIA [None]
  - VASCULAR PSEUDOANEURYSM [None]
  - PAIN IN EXTREMITY [None]
  - ISCHAEMIA [None]
  - CARPAL TUNNEL SYNDROME [None]
